FAERS Safety Report 13776189 (Version 1)
Quarter: 2017Q3

REPORT INFORMATION
  Report Type: Spontaneous
  Country: US (occurrence: US)
  Receive Date: 20170721
  Receipt Date: 20170721
  Transmission Date: 20171127
  Serious: Yes (Other)
  Sender: FDA-Public Use
  Company Number: US-CORDEN PHARMA LATINA S.P.A.-US-2017COR000163

PATIENT
  Age: 6 Year
  Sex: Female

DRUGS (2)
  1. CARBOPLATIN. [Suspect]
     Active Substance: CARBOPLATIN
     Indication: INTRACRANIAL GERM CELL TUMOUR
     Dosage: UNK, THREE CYCLES
  2. THIOTEPA. [Suspect]
     Active Substance: THIOTEPA
     Indication: INTRACRANIAL GERM CELL TUMOUR
     Dosage: UNK, THREE CYCLES

REACTIONS (1)
  - Paraplegia [Not Recovered/Not Resolved]
